FAERS Safety Report 8557183-1 (Version None)
Quarter: 2012Q3

REPORT INFORMATION
  Report Type: 
  Country: None (occurrence: None)
  Receive Date: 20120801
  Receipt Date: 20120726
  Transmission Date: 20120928
  Serious: Yes (Hospitalization, Disabling)
  Sender: FDA-Public Use
  Company Number: PHHY2012CA065510

PATIENT
  Age: 82 Year
  Sex: Male
  Weight: 88 kg

DRUGS (10)
  1. RASILEZ [Suspect]
     Dosage: 1 DF, EVERY DAY
     Route: 048
  2. JANUVIA [Concomitant]
  3. NORVASC [Concomitant]
  4. LIPITOR [Concomitant]
  5. HYDROCHLOROTHIAZIDE [Concomitant]
  6. ASPIRIN [Concomitant]
  7. ATENOLOL [Concomitant]
  8. GLUMETZA [Concomitant]
  9. ALTACE [Concomitant]
  10. DIAMICRON MR [Concomitant]

REACTIONS (1)
  - CEREBROVASCULAR ACCIDENT [None]
